FAERS Safety Report 22797761 (Version 2)
Quarter: 2023Q4

REPORT INFORMATION
  Report Type: Spontaneous
  Country: US (occurrence: US)
  Receive Date: 20230808
  Receipt Date: 20231023
  Transmission Date: 20240110
  Serious: No
  Sender: FDA-Public Use
  Company Number: US-BRISTOL-MYERS SQUIBB COMPANY-2023-111087

PATIENT
  Age: 61 Year
  Sex: Female

DRUGS (1)
  1. POMALYST [Suspect]
     Active Substance: POMALIDOMIDE
     Indication: Plasma cell myeloma
     Dosage: FREQ: QD X 14D ON 14D OFF
     Route: 048

REACTIONS (4)
  - Pruritus [Recovered/Resolved]
  - Muscle spasms [Recovered/Resolved]
  - Fatigue [Unknown]
  - Off label use [Unknown]
